FAERS Safety Report 7077513-X (Version None)
Quarter: 2010Q4

REPORT INFORMATION
  Report Type: 
  Country: None (occurrence: None)
  Receive Date: 20101021
  Receipt Date: 20101013
  Transmission Date: 20110411
  Serious: Yes (Other)
  Sender: FDA-Public Use
  Company Number: 2010SP039970

PATIENT
  Age: 76 Year
  Sex: Female
  Weight: 58 kg

DRUGS (6)
  1. ROCURONIUM BROMIDE [Suspect]
     Indication: NEUROMUSCULAR BLOCKING THERAPY
     Dosage: (35 MG; IV) (10 MG; IV)
     Route: 042
  2. CLINDAMYCIN [Suspect]
     Indication: PYOTHORAX
     Dosage: (600 MG; QD; IV) (1800 MG; IV) (600 MG; IV)
     Route: 042
  3. FENTANYL [Suspect]
     Indication: INDUCTION OF ANAESTHESIA
     Dosage: 100 MCG; IV
     Route: 042
  4. PROPOFOL [Suspect]
     Indication: INDUCTION OF ANAESTHESIA
     Dosage: 80 MG; IV
     Route: 042
  5. SEVOFLURANE [Suspect]
     Indication: MAINTENANCE OF ANAESTHESIA
     Dosage: 1 PCT; INH
     Route: 055
  6. REMIFENTANYL (REMIFENTANIL) [Suspect]
     Indication: MAINTENANCE OF ANAESTHESIA
     Dosage: 0.2 MG/KG; IV
     Route: 042

REACTIONS (1)
  - NEUROMUSCULAR BLOCK PROLONGED [None]
